FAERS Safety Report 6885395-1 (Version None)
Quarter: 2010Q3

REPORT INFORMATION
  Report Type: 
  Country: None (occurrence: None)
  Receive Date: 20100729
  Receipt Date: 20080618
  Transmission Date: 20110219
  Serious: No
  Sender: FDA-Public Use
  Company Number: US-PFIZER INC-2008046030

PATIENT
  Sex: Female
  Weight: 86.18 kg

DRUGS (2)
  1. CELEBREX [Suspect]
     Indication: NECK PAIN
     Dates: start: 20080527, end: 20080603
  2. FLEXERIL [Concomitant]
     Dates: start: 20080527

REACTIONS (3)
  - MUSCLE TWITCHING [None]
  - RASH [None]
  - SWELLING FACE [None]
